FAERS Safety Report 5676416-2 (Version None)
Quarter: 2008Q1

REPORT INFORMATION
  Report Type: 
  Country: None (occurrence: None)
  Receive Date: 20080321
  Receipt Date: 20080313
  Transmission Date: 20080703
  Serious: Yes (Other)
  Sender: FDA-Public Use
  Company Number: US-PFIZER INC-2008023935

PATIENT

DRUGS (1)
  1. CELEBREX [Suspect]

REACTIONS (1)
  - ARTERIOSCLEROTIC RETINOPATHY [None]
